FAERS Safety Report 7795615-7 (Version None)
Quarter: 2011Q4

REPORT INFORMATION
  Report Type: 
  Country: None (occurrence: None)
  Receive Date: 20111004
  Receipt Date: 20110927
  Transmission Date: 20120403
  Serious: Yes (Other)
  Sender: FDA-Public Use
  Company Number: US-GLAXOSMITHKLINE-A0946246A

PATIENT
  Age: 59 Year
  Sex: Female
  Weight: 104.5 kg

DRUGS (7)
  1. LEVOTHYROXINE SODIUM [Concomitant]
  2. COUMADIN [Concomitant]
  3. CYMBALTA [Concomitant]
  4. TYKERB [Suspect]
     Indication: PRODUCT USED FOR UNKNOWN INDICATION
     Dosage: 1250MG PER DAY
     Route: 048
  5. METOPROLOL TARTRATE [Concomitant]
  6. ATIVAN [Concomitant]
  7. XELODA [Concomitant]

REACTIONS (3)
  - DIARRHOEA [None]
  - PALMAR-PLANTAR ERYTHRODYSAESTHESIA SYNDROME [None]
  - DEPRESSION [None]
